FAERS Safety Report 20500426 (Version 1)
Quarter: 2022Q1

REPORT INFORMATION
  Report Type: Report from Study
  Country: US (occurrence: US)
  Receive Date: 20220222
  Receipt Date: 20220222
  Transmission Date: 20220423
  Serious: Yes (Hospitalization)
  Sender: FDA-Public Use
  Company Number: US-TAKEDA-2022TUS010554

PATIENT
  Sex: Female

DRUGS (22)
  1. TEDUGLUTIDE [Suspect]
     Active Substance: TEDUGLUTIDE
     Indication: Short-bowel syndrome
     Dosage: 1.975 MILLIGRAM, QD
     Route: 058
  2. BACTRIM DS [Concomitant]
     Active Substance: SULFAMETHOXAZOLE\TRIMETHOPRIM
  3. AMITIZA [Concomitant]
     Active Substance: LUBIPROSTONE
  4. LEVETIRACETAM [Concomitant]
     Active Substance: LEVETIRACETAM
  5. RIZATRIPTAN [Concomitant]
     Active Substance: RIZATRIPTAN
  6. LINZESS [Concomitant]
     Active Substance: LINACLOTIDE
  7. TRAZODONE HCL [Concomitant]
     Active Substance: TRAZODONE HYDROCHLORIDE
  8. SUMATRIPTAN [Concomitant]
     Active Substance: SUMATRIPTAN
  9. TOPIRAMATE [Concomitant]
     Active Substance: TOPIRAMATE
  10. ONDANSETRON HCL [Concomitant]
     Active Substance: ONDANSETRON HYDROCHLORIDE
  11. PHENYTOIN [Concomitant]
     Active Substance: PHENYTOIN
  12. LORAZEPAM [Concomitant]
     Active Substance: LORAZEPAM
  13. BENADRYL [Concomitant]
     Active Substance: DIPHENHYDRAMINE HYDROCHLORIDE
  14. ORPHENADRINE CITRATE [Concomitant]
     Active Substance: ORPHENADRINE CITRATE
  15. GRANISETRON HYDROCHLORIDE [Concomitant]
     Active Substance: GRANISETRON HYDROCHLORIDE
  16. PYRIDOXINE HYDROCHLORIDE [Concomitant]
     Active Substance: PYRIDOXINE HYDROCHLORIDE
  17. TRANSDERM SCOP [Concomitant]
     Active Substance: SCOPOLAMINE
  18. REMERON [Concomitant]
     Active Substance: MIRTAZAPINE
  19. MIRTAZAPINE [Concomitant]
     Active Substance: MIRTAZAPINE
  20. CYPROHEPTADINE HYDROCHLORIDE [Concomitant]
     Active Substance: CYPROHEPTADINE HYDROCHLORIDE
  21. QUETIAPINE [Concomitant]
     Active Substance: QUETIAPINE
  22. DISODIUM FUMARATE [Concomitant]
     Active Substance: DISODIUM FUMARATE

REACTIONS (2)
  - Rectal prolapse [Unknown]
  - Product dose omission issue [Unknown]
